FAERS Safety Report 14909970 (Version 7)
Quarter: 2021Q4

REPORT INFORMATION
  Report Type: Report from Study
  Country: JP (occurrence: JP)
  Receive Date: 20180517
  Receipt Date: 20211027
  Transmission Date: 20220303
  Serious: Yes (Death)
  Sender: FDA-Public Use
  Company Number: JP-PFIZER INC-2018186914

PATIENT
  Age: 55 Year
  Sex: Male
  Weight: 53.9 kg

DRUGS (19)
  1. BESPONSA [Suspect]
     Active Substance: INOTUZUMAB OZOGAMICIN
     Indication: Acute lymphocytic leukaemia recurrent
     Dosage: 0.8 MG/M2, 1X/DAY, CYCLE1
     Route: 041
     Dates: start: 20180424, end: 20180424
  2. BESPONSA [Suspect]
     Active Substance: INOTUZUMAB OZOGAMICIN
     Dosage: 0.5 MG/M2, 1X/DAY, CYCLE1
     Route: 041
     Dates: start: 20180501, end: 20180501
  3. BESPONSA [Suspect]
     Active Substance: INOTUZUMAB OZOGAMICIN
     Dosage: 0.5 MG/M2, 1X/DAY, CYCLE1
     Route: 041
     Dates: start: 20180511, end: 20180511
  4. BESPONSA [Suspect]
     Active Substance: INOTUZUMAB OZOGAMICIN
     Dosage: 0.8 MG/M2, 1X/DAY, CYCLE2
     Route: 041
     Dates: start: 20180518, end: 20180518
  5. BESPONSA [Suspect]
     Active Substance: INOTUZUMAB OZOGAMICIN
     Dosage: 0.5 MG/M2, 1X/DAY, CYCLE2
     Route: 041
     Dates: start: 20180525, end: 20180525
  6. BESPONSA [Suspect]
     Active Substance: INOTUZUMAB OZOGAMICIN
     Dosage: 0.5 MG/M2, 1X/DAY, CYCLE2
     Route: 041
     Dates: start: 20180601, end: 20180601
  7. MEROPENEM [Concomitant]
     Active Substance: MEROPENEM
     Indication: Lung abscess
     Dosage: 1 G, 3X/DAY
     Route: 041
     Dates: start: 20180111
  8. MEROPENEM [Concomitant]
     Active Substance: MEROPENEM
     Indication: Febrile neutropenia
     Dosage: 1 G, 3X/DAY
     Dates: start: 20180604
  9. TEICOPLANIN [Concomitant]
     Active Substance: TEICOPLANIN
     Indication: Lung abscess
     Dosage: 200 MG, 2X/DAY
     Route: 041
     Dates: start: 20180413
  10. TEICOPLANIN [Concomitant]
     Active Substance: TEICOPLANIN
     Indication: Febrile neutropenia
     Dosage: 400 MG, 1X/DAY
     Route: 041
     Dates: start: 20180420, end: 20180426
  11. TEICOPLANIN [Concomitant]
     Active Substance: TEICOPLANIN
     Dosage: 300 MG, 1X/DAY
     Route: 041
     Dates: start: 20180428
  12. FEBUXOSTAT [Concomitant]
     Active Substance: FEBUXOSTAT
     Indication: Prophylaxis
     Dosage: 60 MG, 1X/DAY
     Route: 048
     Dates: start: 20171220
  13. LANSOPRAZOLE [Concomitant]
     Active Substance: LANSOPRAZOLE
     Indication: Gastritis prophylaxis
     Dosage: 15 MG, 1X/DAY
     Route: 048
     Dates: start: 20171220
  14. ACYCLOVIR [Concomitant]
     Active Substance: ACYCLOVIR
     Indication: Prophylaxis
     Dosage: 200 MG, 1X/DAY
     Route: 048
     Dates: start: 20171220
  15. VORICONAZOLE [Concomitant]
     Active Substance: VORICONAZOLE
     Indication: Lung abscess
     Dosage: 200 MG, 2X/DAY
     Route: 048
     Dates: start: 20180115
  16. VORICONAZOLE [Concomitant]
     Active Substance: VORICONAZOLE
     Indication: Antifungal prophylaxis
  17. CALONAL [Concomitant]
     Active Substance: ACETAMINOPHEN
     Indication: Tumour associated fever
     Dosage: 500 MG, 4X/DAY
     Route: 048
     Dates: start: 20171220
  18. OXYCODONE [Concomitant]
     Active Substance: OXYCODONE
     Indication: Pain
     Dosage: 4.8 MG, DAILY
     Route: 041
     Dates: start: 20180116
  19. URSO [Concomitant]
     Active Substance: URSODIOL
     Indication: Hepatobiliary disorder prophylaxis
     Dosage: UNK
     Route: 048

REACTIONS (4)
  - Neoplasm progression [Fatal]
  - Ventricular arrhythmia [Fatal]
  - Colitis [Recovering/Resolving]
  - White blood cell count decreased [Recovered/Resolved]

NARRATIVE: CASE EVENT DATE: 20180426
